FAERS Safety Report 23729186 (Version 1)
Quarter: 2024Q2

REPORT INFORMATION
  Report Type: Report from Study
  Country: BG (occurrence: BG)
  Receive Date: 20240410
  Receipt Date: 20240410
  Transmission Date: 20240715
  Serious: Yes (Other)
  Sender: FDA-Public Use
  Company Number: BG-AKCEA THERAPEUTICS, INC.-2024IS003216

PATIENT

DRUGS (11)
  1. TEGSEDI [Suspect]
     Active Substance: INOTERSEN SODIUM
     Indication: Product used for unknown indication
     Dosage: 284 MILLIGRAM, QW
     Route: 058
     Dates: start: 20230328
  2. VITAMIN A [Concomitant]
     Active Substance: VITAMIN A
     Indication: Supplementation therapy
     Dosage: 2500 INTERNATIONAL UNIT, QD
     Route: 048
  3. MIDODRINE HYDROCHLORIDE [Concomitant]
     Active Substance: MIDODRINE HYDROCHLORIDE
     Indication: Orthostatic hypotension
     Dosage: 5 MILLIGRAM, BID
     Route: 048
  4. MIDODRINE HYDROCHLORIDE [Concomitant]
     Active Substance: MIDODRINE HYDROCHLORIDE
     Dosage: 2.5 MILLIGRAM, QD
     Route: 048
  5. TRIFAS COR [Concomitant]
     Indication: Oedema
     Dosage: 5 MILLIGRAM, QD
     Route: 065
  6. ELIQUIS [Concomitant]
     Active Substance: APIXABAN
     Indication: Thrombosis
     Dosage: 5 MILLIGRAM, BID
     Route: 065
  7. SPIRONOLACTONE [Concomitant]
     Active Substance: SPIRONOLACTONE
     Indication: Cardiac failure
     Dosage: 25 MILLIGRAM, QD
     Route: 065
  8. FLUDROCORTISONE [Concomitant]
     Active Substance: FLUDROCORTISONE
     Indication: Secondary adrenocortical insufficiency
     Dosage: 0.5 MILLIGRAM, QD
     Route: 065
  9. MONTELUKAST SODIUM [Concomitant]
     Active Substance: MONTELUKAST SODIUM
     Indication: Asthma
     Dosage: 1 DOSAGE FORM, QD
     Route: 065
  10. PIROXICAM [Concomitant]
     Active Substance: PIROXICAM
     Indication: Asthma
     Dosage: 2X2 INHALATIONS
  11. PREGABALIN [Concomitant]
     Active Substance: PREGABALIN
     Indication: Neuralgia
     Dosage: 75 MILLIGRAM, QD
     Route: 065

REACTIONS (8)
  - Leukocytosis [Unknown]
  - Red cell distribution width increased [Unknown]
  - Haematocrit decreased [Unknown]
  - Monocyte count increased [Unknown]
  - Lymphocyte percentage decreased [Unknown]
  - Eosinophil percentage decreased [Unknown]
  - Neutrophilia [Unknown]
  - Anaemia [Unknown]

NARRATIVE: CASE EVENT DATE: 20230410
